FAERS Safety Report 9291329 (Version 1)
Quarter: 2012Q4

REPORT INFORMATION
  Report Type: Spontaneous
  Country: FR (occurrence: None)
  Receive Date: 20121018
  Receipt Date: 20121018
  Transmission Date: 20130627
  Serious: Yes (Hospitalization)
  Sender: FDA-Public Use
  Company Number: 110421

PATIENT
  Age: 70 Year
  Sex: Male

DRUGS (11)
  1. INNOHEP [Suspect]
     Indication: PHLEBITIS
     Dosage: 1DF (1 in 1 D)
     Route: 058
     Dates: start: 20091101, end: 20091105
  2. ORGARAN [Suspect]
     Dosage: 2DF
     Route: 058
     Dates: start: 20091109, end: 20091111
  3. ORGARAN [Suspect]
     Dosage: 2DF
     Route: 058
     Dates: start: 20091112, end: 20091116
  4. GLUCOPHAGE (METFORMIN)(1000 MG) [Concomitant]
  5. HEXAQUINE (HEXAQUINE)(TABLETS) [Concomitant]
  6. CADUET (CADUET)(TABLETS) [Concomitant]
  7. HEMIGOXINE (DIGOXIN)(0.125 MG, TABLETS) [Concomitant]
  8. LEVOTHYROX (LEVOTHYROXINE SODIUM) INFUSION [Concomitant]
  9. ISOPTINE (VERAPAMIL HYDROCHLORIDE) :ISOPTINE(VERAPAMIL HYDROCHLORIDE)(240 MG, TABLETS) [Concomitant]
  10. DEROXAT (PAROXETINE HYDROCHLORIDE)(20 MG, TABLETS) [Concomitant]
  11. PREVISCAN (FLUINDIONE)(20 MG, TABLETS) [Concomitant]

REACTIONS (5)
  - Heparin-induced thrombocytopenia [None]
  - Haematoma [None]
  - Epistaxis [None]
  - Haemoptysis [None]
  - Oral mucosal blistering [None]
